FAERS Safety Report 10400471 (Version 1)
Quarter: 2014Q3

REPORT INFORMATION
  Report Type: Spontaneous
  Country: US (occurrence: US)
  Receive Date: 20140821
  Receipt Date: 20140821
  Transmission Date: 20150326
  Serious: No
  Sender: FDA-Public Use
  Company Number: US-ASTRAZENECA-2013SE87315

PATIENT
  Sex: Female

DRUGS (2)
  1. SYMBICORT [Suspect]
     Active Substance: BUDESONIDE\FORMOTEROL FUMARATE DIHYDRATE
     Indication: FORCED EXPIRATORY VOLUME DECREASED
     Dosage: 160/4.5 MCG TWO INHALATIONS DAILY
     Route: 055
     Dates: start: 201311, end: 201311
  2. SYMBICORT [Suspect]
     Active Substance: BUDESONIDE\FORMOTEROL FUMARATE DIHYDRATE
     Indication: CHRONIC OBSTRUCTIVE PULMONARY DISEASE
     Dosage: 160/4.5 MCG TWO INHALATIONS DAILY
     Route: 055
     Dates: start: 201311, end: 201311

REACTIONS (2)
  - Pruritus [Recovered/Resolved]
  - Off label use [Unknown]
